FAERS Safety Report 8032028-7 (Version None)
Quarter: 2012Q1

REPORT INFORMATION
  Report Type: 
  Country: None (occurrence: None)
  Receive Date: 20120109
  Receipt Date: 20110824
  Transmission Date: 20120608
  Serious: No
  Sender: FDA-Public Use
  Company Number: US-ABBOTT-11P-163-0848906-00

PATIENT
  Age: 55 Year
  Sex: Female

DRUGS (5)
  1. SPIRIVA [Suspect]
     Indication: ASTHMA
  2. VICODIN [Suspect]
     Indication: BACK DISORDER
  3. ALLEGRA [Suspect]
     Indication: SEASONAL ALLERGY
     Dosage: EVERY MORNING
     Dates: start: 20110801, end: 20110801
  4. ADVAIR DISKUS 100/50 [Suspect]
     Indication: ASTHMA
  5. SINGULAIR [Suspect]
     Indication: ASTHMA

REACTIONS (1)
  - NAUSEA [None]
